FAERS Safety Report 22022030 (Version 1)
Quarter: 2023Q1

REPORT INFORMATION
  Report Type: Spontaneous
  Country: TW (occurrence: TW)
  Receive Date: 20230222
  Receipt Date: 20230222
  Transmission Date: 20230418
  Serious: Yes (Other)
  Sender: FDA-Public Use
  Company Number: TW-AMGEN-TWNSP2023027463

PATIENT
  Age: 80 Year
  Sex: Female

DRUGS (1)
  1. PROLIA [Suspect]
     Active Substance: DENOSUMAB
     Indication: Osteoporotic fracture
     Dosage: UNK
     Route: 065
     Dates: start: 20210207, end: 20220808

REACTIONS (3)
  - Pelvic fracture [Unknown]
  - Fall [Unknown]
  - Buttock injury [Unknown]

NARRATIVE: CASE EVENT DATE: 20210728
